FAERS Safety Report 4375924-4 (Version None)
Quarter: 2004Q2

REPORT INFORMATION
  Report Type: 
  Country: None (occurrence: None)
  Receive Date: 20040609
  Receipt Date: 20040609
  Transmission Date: 20050107
  Serious: Yes (Hospitalization)
  Sender: FDA-Public Use
  Company Number: None

PATIENT
  Sex: Female

DRUGS (2)
  1. FLUCONAZOLE [Suspect]
     Indication: MENINGITIS CRYPTOCOCCAL
     Dosage: 200 MG PO QD
     Route: 048
     Dates: start: 20040201, end: 20040325
  2. FLUCONAZOLE [Suspect]
     Indication: PROPHYLAXIS
     Dosage: 200 MG PO QD
     Route: 048
     Dates: start: 20040201, end: 20040325

REACTIONS (11)
  - ALANINE AMINOTRANSFERASE INCREASED [None]
  - ASPARTATE AMINOTRANSFERASE INCREASED [None]
  - ASTHENIA [None]
  - BLOOD AMYLASE INCREASED [None]
  - CHROMATURIA [None]
  - HEPATITIS [None]
  - LIPASE INCREASED [None]
  - PAIN [None]
  - PYREXIA [None]
  - TREATMENT NONCOMPLIANCE [None]
  - VOMITING [None]
